FAERS Safety Report 25306253 (Version 1)
Quarter: 2025Q2

REPORT INFORMATION
  Report Type: Spontaneous
  Country: ES (occurrence: ES)
  Receive Date: 20250513
  Receipt Date: 20250513
  Transmission Date: 20250717
  Serious: Yes (Life-Threatening, Hospitalization, Other)
  Sender: Steriscience PTE
  Company Number: ES-STERISCIENCE B.V.-2025-ST-000891

PATIENT
  Age: 67 Year
  Sex: Female

DRUGS (6)
  1. MIDAZOLAM [Suspect]
     Active Substance: MIDAZOLAM
     Indication: Generalised tonic-clonic seizure
     Route: 042
  2. MYCOPHENOLATE MOFETIL [Suspect]
     Active Substance: MYCOPHENOLATE MOFETIL
     Indication: Immunosuppressant drug therapy
     Route: 065
  3. CYCLOSPORINE [Suspect]
     Active Substance: CYCLOSPORINE
     Indication: Immunosuppressant drug therapy
     Route: 065
  4. CYCLOSPORINE [Suspect]
     Active Substance: CYCLOSPORINE
     Route: 065
  5. METHYLPREDNISOLONE [Suspect]
     Active Substance: METHYLPREDNISOLONE
     Indication: Immunosuppressant drug therapy
     Route: 065
  6. SODIUM BICARBONATE [Concomitant]
     Active Substance: SODIUM BICARBONATE
     Indication: Acidosis
     Route: 065

REACTIONS (3)
  - Disease recurrence [Unknown]
  - Cryptosporidiosis infection [None]
  - Off label use [Unknown]
